FAERS Safety Report 15072960 (Version 1)
Quarter: 2018Q2

REPORT INFORMATION
  Report Type: Report from Study
  Country: US (occurrence: US)
  Receive Date: 20180627
  Receipt Date: 20180627
  Transmission Date: 20180711
  Serious: Yes (Life-Threatening, Other)
  Sender: FDA-Public Use
  Company Number: US-AMGEN-USASL2018084270

PATIENT
  Sex: Female

DRUGS (1)
  1. PROLIA [Suspect]
     Active Substance: DENOSUMAB
     Indication: PRODUCT USED FOR UNKNOWN INDICATION
     Dosage: UNK
     Route: 065

REACTIONS (10)
  - Hernia [Unknown]
  - Cerebrovascular accident [Unknown]
  - Spinal operation [Unknown]
  - Muscle spasms [Unknown]
  - Dehydration [Unknown]
  - Paralysis [Unknown]
  - Hip fracture [Unknown]
  - Nodule [Unknown]
  - Drug dose omission [Unknown]
  - Bladder disorder [Unknown]

NARRATIVE: CASE EVENT DATE: 201801
